FAERS Safety Report 9856190 (Version 1)
Quarter: 2014Q1

REPORT INFORMATION
  Report Type: Spontaneous
  Country: US (occurrence: US)
  Receive Date: 20140130
  Receipt Date: 20140130
  Transmission Date: 20141002
  Serious: No
  Sender: FDA-Public Use
  Company Number: US-B.I. PHARMACEUTICALS,INC./RIDGEFIELD-2014-BI-02790BP

PATIENT
  Sex: Male

DRUGS (6)
  1. SPIRIVA [Suspect]
     Indication: CHRONIC OBSTRUCTIVE PULMONARY DISEASE
     Dosage: 18 MCG
     Route: 055
     Dates: start: 2013, end: 2013
  2. BENZATROPINE [Concomitant]
  3. CLONAZEPAM [Concomitant]
  4. HYDROCHLORIDE [Concomitant]
  5. PAXIL [Concomitant]
  6. SAPHRIS [Concomitant]

REACTIONS (1)
  - Dyspnoea [Recovered/Resolved]
